FAERS Safety Report 4585936-3 (Version None)
Quarter: 2005Q1

REPORT INFORMATION
  Report Type: 
  Country: None (occurrence: None)
  Receive Date: 20050214
  Receipt Date: 20050203
  Transmission Date: 20050727
  Serious: Yes (Death)
  Sender: FDA-Public Use
  Company Number: GBWYE037313SEP04

PATIENT
  Age: 45 Year
  Sex: Female

DRUGS (5)
  1. EFFEXOR [Suspect]
     Indication: DEPRESSION
     Dosage: OVERDOSE
  2. AMITRIPTYLINE HCL [Concomitant]
  3. NORTRIPTYLINE HCL [Concomitant]
  4. DIHYDROCODEINE [Concomitant]
  5. ZOPICLONE [Concomitant]

REACTIONS (15)
  - ANEURYSM RUPTURED [None]
  - ARTERIOSCLEROSIS [None]
  - CARDIAC ARREST [None]
  - CARDIAC FAILURE [None]
  - CHOLELITHIASIS [None]
  - CORONARY ARTERY ATHEROSCLEROSIS [None]
  - CORONARY ARTERY STENOSIS [None]
  - DRUG TOXICITY [None]
  - DUODENITIS [None]
  - HEPATIC CONGESTION [None]
  - OVERDOSE [None]
  - PULMONARY OEDEMA [None]
  - SOMNOLENCE [None]
  - SPLEEN CONGESTION [None]
  - UPPER RESPIRATORY TRACT CONGESTION [None]
